FAERS Safety Report 9308947 (Version 1)
Quarter: 2013Q2

REPORT INFORMATION
  Report Type: Report from Study
  Country: GB (occurrence: GB)
  Receive Date: 20130524
  Receipt Date: 20130524
  Transmission Date: 20140414
  Serious: Yes (Hospitalization)
  Sender: FDA-Public Use
  Company Number: GB-ABBOTT-13P-167-1092774-00

PATIENT
  Age: 29 Year
  Sex: Female

DRUGS (2)
  1. HUMIRA [Suspect]
     Indication: CROHN^S DISEASE
     Route: 058
     Dates: start: 200803, end: 200803
  2. HUMIRA [Suspect]
     Route: 058
     Dates: end: 20100622

REACTIONS (2)
  - Proctocolectomy [Not Recovered/Not Resolved]
  - Ileostomy [Not Recovered/Not Resolved]
